FAERS Safety Report 7409098-X (Version None)
Quarter: 2011Q2

REPORT INFORMATION
  Report Type: 
  Country: None (occurrence: None)
  Receive Date: 20110412
  Receipt Date: 20110406
  Transmission Date: 20111010
  Serious: Yes (Hospitalization, Other)
  Sender: FDA-Public Use
  Company Number: FR-ROCHE-725577

PATIENT
  Sex: Male
  Weight: 35 kg

DRUGS (23)
  1. MUTESA [Concomitant]
     Dates: start: 20101112
  2. BEVACIZUMAB [Suspect]
     Indication: SARCOMA
     Dosage: FORM:7.5 MG/KG, TEMPORARILY INTERRUPTED
     Route: 041
     Dates: start: 20100828, end: 20101124
  3. ACTINOMYCIN D [Suspect]
     Indication: SARCOMA
     Dosage: FORM:1.5 MG/M2,
     Route: 042
     Dates: start: 20100828
  4. ACTINOMYCIN D [Suspect]
     Dosage: 4TH CURE
     Route: 042
     Dates: start: 20101101
  5. IFOSFAMIDE [Suspect]
     Dosage: 4TH CURE
     Route: 042
     Dates: start: 20101101
  6. VINCRISTINE [Suspect]
     Indication: SARCOMA
     Dosage: FORM:1.5 MG/M2
     Route: 042
     Dates: start: 20100828, end: 20100903
  7. RIVOTRIL [Concomitant]
     Dates: start: 20101110
  8. TAZOCILLINE [Concomitant]
     Dates: end: 20101029
  9. SPASFON [Concomitant]
     Dosage: DOSE:1-2AMP/D
     Dates: start: 20100830
  10. VINCRISTINE [Suspect]
     Dosage: DOSAGE FORM: 1.5 MG/M2, DATE OF LAST DOSE PRIOR TO SAE: 11 OCT 2010
     Route: 042
  11. BACTRIM [Concomitant]
     Dosage: REPORTED AS 800MGX3/W
     Dates: start: 20100827
  12. TRACUTIL [Concomitant]
     Dates: start: 20101110
  13. DOXORUBICIN [Suspect]
     Indication: SARCOMA
     Dosage: FORM:60 MG/M2,
     Route: 042
     Dates: start: 20100828
  14. ZOPHREN [Concomitant]
     Dosage: REPORTED AS 8MG*2/D
     Dates: start: 20100828, end: 20100902
  15. DOXORUBICIN [Suspect]
     Dosage: 4TH CURE
     Route: 042
     Dates: start: 20101101
  16. IFOSFAMIDE [Suspect]
     Indication: SARCOMA
     Dosage: FORM:6 G/M2,
     Route: 042
     Dates: start: 20100828
  17. VINCRISTINE [Suspect]
     Route: 042
     Dates: start: 20101101
  18. CERNEVIT-12 [Concomitant]
     Dosage: TDD:1.5 AMP /D
     Dates: start: 20101110
  19. VINCRISTINE [Suspect]
     Dosage: RESTARTED. LAST DOSE PRIOR TO SAE : 17 SEPTEMBER 2010.
     Route: 042
     Dates: start: 20100917
  20. PERFALGAN [Concomitant]
     Dosage: REPORTED AS 500MG*4/D
     Dates: start: 20100829
  21. PLITICAN [Concomitant]
     Dates: start: 20100828, end: 20100902
  22. DOLOSAL [Concomitant]
     Dates: start: 20101110, end: 20101116
  23. BEVACIZUMAB [Suspect]
     Route: 041
     Dates: start: 20101101

REACTIONS (7)
  - TOXIC EPIDERMAL NECROLYSIS [None]
  - FEBRILE BONE MARROW APLASIA [None]
  - NEURALGIA [None]
  - PERIPHERAL SENSORIMOTOR NEUROPATHY [None]
  - RASH VESICULAR [None]
  - FIXED ERUPTION [None]
  - MUCOSAL INFLAMMATION [None]
